FAERS Safety Report 8315512-8 (Version None)
Quarter: 2012Q2

REPORT INFORMATION
  Report Type: 
  Country: None (occurrence: None)
  Receive Date: 20120426
  Receipt Date: 20120418
  Transmission Date: 20120825
  Serious: Yes (Hospitalization)
  Sender: FDA-Public Use
  Company Number: ES-ABBOTT-12P-144-0928203-00

PATIENT
  Age: 27 Year
  Sex: Female

DRUGS (6)
  1. INVEGA [Suspect]
     Indication: INTENTIONAL OVERDOSE
     Dosage: TOTAL
     Route: 048
     Dates: start: 20110824, end: 20110824
  2. AKINETON [Suspect]
     Indication: INTENTIONAL OVERDOSE
     Dosage: TOTAL
     Route: 048
     Dates: start: 20110824, end: 20110824
  3. SEROQUEL [Suspect]
     Indication: INTENTIONAL OVERDOSE
     Dosage: TOTAL
     Route: 048
     Dates: start: 20110824, end: 20110824
  4. CLONAZEPAM [Suspect]
     Indication: INTENTIONAL OVERDOSE
     Dosage: TOTAL
     Route: 048
     Dates: start: 20110824, end: 20110824
  5. ZYPREXA [Suspect]
     Indication: INTENTIONAL OVERDOSE
     Dosage: TOTAL
     Route: 048
     Dates: start: 20110824, end: 20110824
  6. ESCITALOPRAM [Suspect]
     Indication: INTENTIONAL OVERDOSE
     Dosage: TOTAL
     Route: 048
     Dates: start: 20110824, end: 20110824

REACTIONS (2)
  - INTENTIONAL OVERDOSE [None]
  - DEPRESSED LEVEL OF CONSCIOUSNESS [None]
